FAERS Safety Report 18121679 (Version 2)
Quarter: 2020Q3

REPORT INFORMATION
  Report Type: Report from Study
  Country: US (occurrence: US)
  Receive Date: 20200806
  Receipt Date: 20200925
  Transmission Date: 20201103
  Serious: No
  Sender: FDA-Public Use
  Company Number: NVSC2020US216778

PATIENT
  Age: 37 Year
  Sex: Female

DRUGS (1)
  1. COSENTYX [Suspect]
     Active Substance: SECUKINUMAB
     Indication: ANKYLOSING SPONDYLITIS
     Dosage: 300 MG/KG, QMO (BENEATH THE SKIN)
     Route: 058
     Dates: start: 20200612, end: 20200803

REACTIONS (3)
  - Anxiety [Unknown]
  - Headache [Unknown]
  - Nervousness [Unknown]

NARRATIVE: CASE EVENT DATE: 20200612
